FAERS Safety Report 15881960 (Version 1)
Quarter: 2019Q1

REPORT INFORMATION
  Report Type: Spontaneous
  Country: US (occurrence: US)
  Receive Date: 20190128
  Receipt Date: 20190128
  Transmission Date: 20190417
  Serious: No
  Sender: FDA-Public Use
  Company Number: US-TARO-2018TAR00014

PATIENT
  Sex: Male
  Weight: 74.83 kg

DRUGS (2)
  1. MOMETASONE FUROATE CREAM USP 0.1% [Suspect]
     Active Substance: MOMETASONE FUROATE
     Indication: SKIN CANCER
     Dosage: UNK, UNK AS NEEDED
     Route: 061
  2. MOMETASONE FUROATE CREAM USP 0.1% [Suspect]
     Active Substance: MOMETASONE FUROATE
     Dosage: UNK, UNK AS NEEDED
     Route: 061

REACTIONS (4)
  - Off label use [Not Recovered/Not Resolved]
  - Application site pain [Recovered/Resolved]
  - Product quality issue [Recovered/Resolved]
  - Expired product administered [Recovered/Resolved]
